FAERS Safety Report 5447906-2 (Version None)
Quarter: 2007Q3

REPORT INFORMATION
  Report Type: 
  Country: None (occurrence: None)
  Receive Date: 20070910
  Receipt Date: 20070829
  Transmission Date: 20080115
  Serious: Yes (Other)
  Sender: FDA-Public Use
  Company Number: US-PFIZER INC-2007060069

PATIENT
  Sex: Female
  Weight: 54 kg

DRUGS (8)
  1. DEPO-SUBQ PROVERA 104 [Suspect]
     Indication: CONTRACEPTION
     Route: 058
     Dates: start: 20051207, end: 20051207
  2. DEPO-SUBQ PROVERA 104 [Suspect]
     Route: 058
     Dates: start: 20060303, end: 20060303
  3. DEPO-SUBQ PROVERA 104 [Suspect]
     Route: 058
     Dates: start: 20060526, end: 20060526
  4. DEPO-SUBQ PROVERA 104 [Suspect]
     Route: 058
     Dates: start: 20060818, end: 20060818
  5. DEPO-SUBQ PROVERA 104 [Suspect]
     Route: 058
     Dates: start: 20061113, end: 20061113
  6. DEPO-SUBQ PROVERA 104 [Suspect]
     Route: 058
     Dates: start: 20070212, end: 20070212
  7. DEPO-SUBQ PROVERA 104 [Suspect]
     Route: 058
     Dates: start: 20070508, end: 20070508
  8. DEPO-SUBQ PROVERA 104 [Suspect]
     Route: 058
     Dates: start: 20070801, end: 20070801

REACTIONS (3)
  - ABDOMINAL PAIN [None]
  - ABDOMINAL WALL MASS [None]
  - FAT NECROSIS [None]
